FAERS Safety Report 9528165 (Version 1)
Quarter: 2013Q3

REPORT INFORMATION
  Report Type: Spontaneous
  Country: GB (occurrence: GB)
  Receive Date: 20130917
  Receipt Date: 20130917
  Transmission Date: 20140515
  Serious: Yes (Other)
  Sender: FDA-Public Use
  Company Number: PHFR2013GB005221

PATIENT
  Age: 22 Year
  Sex: Female
  Weight: 114 kg

DRUGS (3)
  1. CLOZAPINE [Suspect]
     Indication: PSYCHOTIC DISORDER
     Dosage: 400 MG, (100MG IN THE MORNING, 300MG AT NIGHT.)
     Route: 048
     Dates: start: 20130718, end: 20130830
  2. CITALOPRAM [Concomitant]
     Dosage: UNK
  3. HYOSCINE HYDROBROMIDE [Concomitant]
     Dosage: UNK

REACTIONS (2)
  - Oedema peripheral [Not Recovered/Not Resolved]
  - Pain [Unknown]
